FAERS Safety Report 12763265 (Version 1)
Quarter: 2016Q3

REPORT INFORMATION
  Report Type: Spontaneous
  Country: DE (occurrence: DE)
  Receive Date: 20160920
  Receipt Date: 20160920
  Transmission Date: 20161109
  Serious: Yes (Death, Other)
  Sender: FDA-Public Use
  Company Number: DE-FRESENIUS KABI-FK201606628

PATIENT

DRUGS (7)
  1. VINCRISTINE (MANUFACTURER UNKNOWN) [Suspect]
     Active Substance: VINCRISTINE
     Indication: GANGLIONEUROBLASTOMA
     Route: 065
  2. ETOPOSIDE (MANUFACTURER UNKNOWN) [Suspect]
     Active Substance: ETOPOSIDE
     Indication: GANGLIONEUROBLASTOMA
     Route: 065
  3. IFOSFAMIDE (MANUFACTURER UNKNOWN) [Suspect]
     Active Substance: IFOSFAMIDE
     Indication: GANGLIONEUROBLASTOMA
     Route: 065
  4. VINDESINE [Suspect]
     Active Substance: VINDESINE
     Indication: GANGLIONEUROBLASTOMA
  5. DACARBAZINE (MANUFACTURER UNKNOWN) [Suspect]
     Active Substance: DACARBAZINE
     Indication: GANGLIONEUROBLASTOMA
     Route: 065
  6. DOXORUBICIN [Suspect]
     Active Substance: DOXORUBICIN
     Indication: GANGLIONEUROBLASTOMA
  7. CISPLATIN (MANUFACTURER UNKNOWN) [Suspect]
     Active Substance: CISPLATIN
     Indication: GANGLIONEUROBLASTOMA
     Route: 065

REACTIONS (2)
  - Cardiac failure [Fatal]
  - Pulmonary oedema [Unknown]
